FAERS Safety Report 11857813 (Version 1)
Quarter: 2015Q4

REPORT INFORMATION
  Report Type: Spontaneous
  Country: US (occurrence: US)
  Receive Date: 20151222
  Receipt Date: 20151222
  Transmission Date: 20160305
  Serious: Yes (Other)
  Sender: FDA-Public Use
  Company Number: US-PFIZER INC-2015448277

PATIENT

DRUGS (6)
  1. SERTRALINE HCL [Suspect]
     Active Substance: SERTRALINE HYDROCHLORIDE
     Dosage: 150 MG, UNK
  2. LAMICTAL [Suspect]
     Active Substance: LAMOTRIGINE
     Dosage: 400 MG, UNK
  3. KEPPRA [Suspect]
     Active Substance: LEVETIRACETAM
     Indication: SEIZURE
     Dosage: 200 MG, DAILY
  4. SERTRALINE HCL [Suspect]
     Active Substance: SERTRALINE HYDROCHLORIDE
     Indication: MOOD SWINGS
     Dosage: 75 MG, UNK
  5. SERTRALINE HCL [Suspect]
     Active Substance: SERTRALINE HYDROCHLORIDE
     Dosage: 100 MG, UNK
  6. SERTRALINE HCL [Suspect]
     Active Substance: SERTRALINE HYDROCHLORIDE
     Dosage: 175 MG, UNK

REACTIONS (4)
  - Insomnia [Unknown]
  - Coordination abnormal [Unknown]
  - Fall [Unknown]
  - Dizziness [Unknown]
